FAERS Safety Report 14240777 (Version 4)
Quarter: 2018Q2

REPORT INFORMATION
  Report Type: Report from Study
  Country: JP (occurrence: JP)
  Receive Date: 20171130
  Receipt Date: 20180525
  Transmission Date: 20180711
  Serious: Yes (Death, Life-Threatening, Hospitalization, Disabling, Other)
  Sender: FDA-Public Use
  Company Number: JP-CELGENEUS-JPN-20171108200

PATIENT
  Age: 66 Year
  Sex: Male

DRUGS (73)
  1. MEPTIN [Concomitant]
     Active Substance: PROCATEROL HYDROCHLORIDE
     Indication: ADVERSE EVENT
     Dosage: UNKNOWN
     Route: 055
  2. CRAVIT [Concomitant]
     Active Substance: LEVOFLOXACIN
     Indication: ADVERSE EVENT
     Dosage: UNKNOWN
     Route: 041
  3. DENOSINE [Concomitant]
     Active Substance: GANCICLOVIR
     Indication: ADVERSE EVENT
     Dosage: UNKNOWN
     Route: 041
  4. BUSCOPAN [Concomitant]
     Active Substance: BUTYLSCOPOLAMINE BROMIDE
     Indication: ADVERSE EVENT
     Dosage: UNKNOWN
     Route: 041
  5. BENAMBAX [Concomitant]
     Active Substance: PENTAMIDINE
     Indication: PROPHYLAXIS
     Dosage: UNKNOWN
     Route: 041
  6. MEYLON [Concomitant]
     Active Substance: SODIUM BICARBONATE
     Indication: ADVERSE EVENT
     Dosage: UNKNOWN
     Route: 041
  7. HUMULIN R [Concomitant]
     Active Substance: INSULIN HUMAN
     Indication: ADVERSE EVENT
     Dosage: UNKNOWN
     Route: 041
  8. BAYASPIRIN [Concomitant]
     Active Substance: ASPIRIN
     Indication: PROPHYLAXIS
     Dosage: UNKNOWN
     Route: 048
  9. AMITIZA [Concomitant]
     Active Substance: LUBIPROSTONE
     Indication: ADVERSE EVENT
     Dosage: UNKNOWN
     Route: 048
  10. BIOFERMIN-R [Concomitant]
     Indication: ADVERSE EVENT
     Dosage: UNKNOWN
     Route: 048
  11. ZOLPIDEM TARTRATE. [Concomitant]
     Active Substance: ZOLPIDEM TARTRATE
     Indication: PRODUCT USED FOR UNKNOWN INDICATION
     Dosage: UNKNOWN
     Route: 048
  12. HALIZON [Concomitant]
     Active Substance: AMPHOTERICIN B
     Indication: ADVERSE EVENT
     Dosage: UNKNOWN
     Route: 048
  13. LOPERAMIDE [Concomitant]
     Active Substance: LOPERAMIDE
     Indication: ADVERSE EVENT
     Dosage: UNKNOWN
     Route: 048
  14. PRIMPERAN [Concomitant]
     Active Substance: METOCLOPRAMIDE HYDROCHLORIDE
     Indication: ADVERSE EVENT
     Dosage: UNKNOWN
     Route: 065
  15. MULTAMIN [Concomitant]
     Active Substance: VITAMINS
     Indication: ADVERSE EVENT
     Dosage: UNKNOWN
     Route: 041
  16. CANCIDAS [Concomitant]
     Active Substance: CASPOFUNGIN ACETATE
     Indication: ADVERSE EVENT
     Dosage: UNKNOWN
     Route: 041
  17. MEROPENEM. [Concomitant]
     Active Substance: MEROPENEM
     Indication: ADVERSE EVENT
     Dosage: UNKNOWN
     Route: 041
  18. LENADEX [Suspect]
     Active Substance: DEXAMETHASONE ACETATE
     Dosage: 40 MILLIGRAM
     Route: 048
     Dates: start: 20161118, end: 20161119
  19. LENADEX [Suspect]
     Active Substance: DEXAMETHASONE ACETATE
     Dosage: 40 MILLIGRAM
     Route: 048
     Dates: start: 20161125, end: 20161126
  20. GEBEN [Concomitant]
     Active Substance: SILVER SULFADIAZINE
     Indication: ADVERSE EVENT
     Dosage: UNKNOWN
     Route: 061
  21. SOLU-CORTEF [Concomitant]
     Active Substance: HYDROCORTISONE SODIUM SUCCINATE
     Indication: ADVERSE EVENT
     Dosage: UNKNOWN
     Route: 041
  22. SOLDACTONE [Concomitant]
     Active Substance: CANRENOATE POTASSIUM
     Indication: ADVERSE EVENT
     Dosage: UNKNOWN
     Route: 041
  23. CARBAZOCHROME SODIUM SULFONATE [Concomitant]
     Active Substance: CARBAZOCHROME SODIUM SULFONATE
     Indication: ADVERSE EVENT
     Dosage: UNKNOWN
     Route: 041
  24. ALINAMIN F [Concomitant]
     Active Substance: FURSULTIAMINE HYDROCHLORIDE
     Indication: ADVERSE EVENT
     Dosage: UNKNOWN
     Route: 041
  25. TAZOPIPE [Concomitant]
     Active Substance: PIPERACILLIN SODIUM\TAZOBACTAM SODIUM
     Indication: ADVERSE EVENT
     Dosage: UNKNOWN
     Route: 041
  26. ELEJECT [Concomitant]
     Indication: ADVERSE EVENT
     Dosage: UNKNOWN
     Route: 041
  27. SOLU-MEDROL [Concomitant]
     Active Substance: METHYLPREDNISOLONE SODIUM SUCCINATE
     Indication: ADVERSE EVENT
     Dosage: UNKNOWN
     Route: 041
  28. DALACIN S [Concomitant]
     Active Substance: CLINDAMYCIN PHOSPHATE
     Indication: ADVERSE EVENT
     Dosage: UNKNOWN
     Route: 041
  29. VELCADE [Suspect]
     Active Substance: BORTEZOMIB
     Dosage: UNKNOWN
     Route: 065
     Dates: start: 20161122, end: 20161122
  30. VELCADE [Suspect]
     Active Substance: BORTEZOMIB
     Dosage: UNKNOWN
     Route: 065
     Dates: start: 20161125, end: 20161125
  31. RABEPRAZOLE SODIUM. [Concomitant]
     Active Substance: RABEPRAZOLE SODIUM
     Indication: PROPHYLAXIS
     Dosage: UNKNOWN
     Route: 048
  32. MAGMITT [Concomitant]
     Active Substance: MAGNESIUM OXIDE
     Indication: ADVERSE EVENT
     Dosage: UNKNOWN
     Route: 048
  33. OMEPRAZOLE. [Concomitant]
     Active Substance: OMEPRAZOLE
     Indication: PRODUCT USED FOR UNKNOWN INDICATION
     Dosage: UNKNOWN
     Route: 041
  34. POTASSIUM CHLORIDE. [Concomitant]
     Active Substance: POTASSIUM CHLORIDE
     Indication: ADVERSE EVENT
     Dosage: UNKNOWN
     Route: 041
  35. OMEPRAL [Concomitant]
     Active Substance: OMEPRAZOLE
     Indication: ADVERSE EVENT
     Dosage: UNKNOWN
     Route: 041
  36. HYDROCORTONE [Concomitant]
     Active Substance: HYDROCORTISONE
     Indication: ADVERSE EVENT
     Dosage: UNKNOWN
     Route: 041
  37. ELNEOPA NF NO.2 [Concomitant]
     Indication: ADVERSE EVENT
     Dosage: UNKNOWN
     Route: 041
  38. LENADEX [Suspect]
     Active Substance: DEXAMETHASONE ACETATE
     Indication: PLASMA CELL MYELOMA
     Dosage: 40 MILLIGRAM
     Route: 048
     Dates: start: 20161115, end: 20161116
  39. SENNOSIDE [Concomitant]
     Active Substance: SENNOSIDES
     Indication: ADVERSE EVENT
     Dosage: UNKNOWN
     Route: 048
  40. CEFEPIME DIHYDROCHLORIDE [Concomitant]
     Active Substance: CEFEPIME HYDROCHLORIDE
     Indication: ADVERSE EVENT
     Dosage: UNKNOWN
     Route: 041
  41. COCARL [Concomitant]
     Active Substance: ACETAMINOPHEN
     Indication: ADVERSE EVENT
     Dosage: UNKNOWN
     Route: 048
  42. ANTEBATE [Concomitant]
     Active Substance: BETAMETHASONE DIPROPIONATE
     Indication: ADVERSE EVENT
     Dosage: UNKNOWN
     Route: 061
  43. POLYMYXIN B SULFATE. [Concomitant]
     Active Substance: POLYMYXIN B SULFATE
     Indication: PRODUCT USED FOR UNKNOWN INDICATION
     Dosage: UNKNOWN
     Route: 048
  44. ELENTAL [Concomitant]
     Active Substance: AMINO ACIDS\CARBOHYDRATES\MINERALS\SOYBEAN OIL\VITAMINS
     Indication: PRODUCT USED FOR UNKNOWN INDICATION
     Dosage: UNKNOWN
     Route: 048
  45. NEUTROGIN [Concomitant]
     Active Substance: LENOGRASTIM
     Indication: ADVERSE EVENT
     Dosage: UNKNOWN
     Route: 041
  46. AMIZET B [Concomitant]
     Indication: ADVERSE EVENT
     Dosage: UNKNOWN
     Route: 041
  47. REVLIMID [Suspect]
     Active Substance: LENALIDOMIDE
     Indication: PLASMA CELL MYELOMA
     Dosage: 25 MILLIGRAM
     Route: 048
     Dates: start: 20161115, end: 20161128
  48. VICCLOX [Concomitant]
     Active Substance: ACYCLOVIR SODIUM
     Indication: PROPHYLAXIS
     Dosage: UNKNOWN
     Route: 048
  49. FEBURIC [Concomitant]
     Active Substance: FEBUXOSTAT
     Indication: PROPHYLAXIS
     Dosage: UNKNOWN
     Route: 048
  50. ASPARA POTASSIUM [Concomitant]
     Active Substance: POTASSIUM ASPARTATE
     Indication: PRODUCT USED FOR UNKNOWN INDICATION
     Dosage: UNKNOWN
     Route: 048
  51. DEXART [Concomitant]
     Active Substance: DEXAMETHASONE SODIUM PHOSPHATE
     Indication: ADVERSE EVENT
     Dosage: UNKNOWN
     Route: 041
  52. TEICOPLANIN [Concomitant]
     Active Substance: TEICOPLANIN
     Indication: ADVERSE EVENT
     Dosage: UNKNOWN
     Route: 041
  53. ACELIO [Concomitant]
     Active Substance: ACETAMINOPHEN
     Indication: ADVERSE EVENT
     Dosage: UNKNOWN
     Route: 041
  54. INTRALIPOS [Concomitant]
     Active Substance: SOYBEAN OIL
     Indication: ADVERSE EVENT
     Dosage: UNKNOWN
     Route: 041
  55. VFEND [Concomitant]
     Active Substance: VORICONAZOLE
     Indication: ADVERSE EVENT
     Dosage: UNKNOWN
     Route: 041
  56. NOR-ADRENALIN [Concomitant]
     Indication: ADVERSE EVENT
     Dosage: UNKNOWN
     Route: 041
  57. MAGNESIUM SULFATE. [Concomitant]
     Active Substance: MAGNESIUM SULFATE
     Indication: ADVERSE EVENT
     Dosage: UNKNOWN
     Route: 041
  58. ELNEOPA NF NO.1 [Concomitant]
     Indication: ADVERSE EVENT
     Dosage: UNKNOWN
     Route: 041
  59. LENADEX [Suspect]
     Active Substance: DEXAMETHASONE ACETATE
     Dosage: 40 MILLIGRAM
     Route: 048
     Dates: start: 20161122, end: 20161123
  60. BAKTAR [Suspect]
     Active Substance: SULFAMETHOXAZOLE\TRIMETHOPRIM
     Indication: PRODUCT USED FOR UNKNOWN INDICATION
     Dosage: UNKNOWN
     Route: 048
  61. ALBUMIN TANNATE [Concomitant]
     Active Substance: ALBUMIN BOVINE\TANNIC ACID
     Indication: ADVERSE EVENT
     Dosage: UNKNOWN
     Route: 048
  62. PROPETO [Concomitant]
     Indication: ADVERSE EVENT
     Dosage: UNKNOWN
     Route: 061
  63. HIRUDOID [Concomitant]
     Active Substance: GLYCOSAMINOGLYCANS
     Indication: ADVERSE EVENT
     Dosage: UNKNOWN
     Route: 061
  64. FINIBAX [Concomitant]
     Active Substance: DORIPENEM MONOHYDRATE
     Indication: ADVERSE EVENT
     Dosage: UNKNOWN
     Route: 041
  65. INOVAN [Concomitant]
     Active Substance: DOPAMINE HYDROCHLORIDE
     Indication: ADVERSE EVENT
     Dosage: UNKNOWN
     Route: 041
  66. AMBISOME [Concomitant]
     Active Substance: AMPHOTERICIN B
     Indication: ADVERSE EVENT
     Dosage: UNKNOWN
     Route: 041
  67. VELCADE [Suspect]
     Active Substance: BORTEZOMIB
     Indication: PLASMA CELL MYELOMA
     Dosage: UNKNOWN
     Route: 065
     Dates: start: 20161115, end: 20161115
  68. VELCADE [Suspect]
     Active Substance: BORTEZOMIB
     Dosage: UNKNOWN
     Route: 065
     Dates: start: 20161118, end: 20161118
  69. MIYA-BM [Concomitant]
     Active Substance: CLOSTRIDIUM BUTYRICUM SPORES STRAIN M-55
     Indication: ADVERSE EVENT
     Dosage: UNKNOWN
     Route: 048
  70. INAVIR [Concomitant]
     Indication: ADVERSE EVENT
     Dosage: UNKNOWN
     Route: 055
  71. LASIX [Concomitant]
     Active Substance: FUROSEMIDE
     Indication: ADVERSE EVENT
     Dosage: UNKNOWN
     Route: 041
  72. MINOCYCLINE HCL [Concomitant]
     Active Substance: MINOCYCLINE HYDROCHLORIDE
     Indication: ADVERSE EVENT
     Dosage: UNKNOWN
     Route: 041
  73. POLARAMINE [Concomitant]
     Active Substance: DEXCHLORPHENIRAMINE MALEATE
     Indication: ADVERSE EVENT
     Dosage: UNKNOWN
     Route: 041

REACTIONS (16)
  - Multiple organ dysfunction syndrome [Fatal]
  - Respiratory failure [Not Recovered/Not Resolved]
  - Depressed level of consciousness [Not Recovered/Not Resolved]
  - Dehydration [Not Recovered/Not Resolved]
  - Sepsis [Not Recovered/Not Resolved]
  - Pneumonitis [Not Recovered/Not Resolved]
  - Decubitus ulcer [Not Recovered/Not Resolved]
  - Cerebral infarction [Not Recovered/Not Resolved]
  - Pneumonia staphylococcal [Not Recovered/Not Resolved]
  - Pleural effusion [Not Recovered/Not Resolved]
  - Constipation [Recovered/Resolved]
  - Erythema multiforme [Recovering/Resolving]
  - Pyrexia [Not Recovered/Not Resolved]
  - Platelet count decreased [Recovered/Resolved]
  - Diarrhoea [Fatal]
  - Cerebral haemorrhage [Fatal]

NARRATIVE: CASE EVENT DATE: 20161117
